FAERS Safety Report 4319183-7 (Version None)
Quarter: 2004Q1

REPORT INFORMATION
  Report Type: 
  Country: None (occurrence: None)
  Receive Date: 20040315
  Receipt Date: 20031204
  Transmission Date: 20041129
  Serious: Yes (Hospitalization)
  Sender: FDA-Public Use
  Company Number: 2003189034US

PATIENT
  Age: 83 Year
  Sex: Female

DRUGS (5)
  1. BEXTRA [Suspect]
     Indication: ARTHRITIS
     Dosage: 10 MG, ORAL
     Route: 048
     Dates: start: 20031108, end: 20031113
  2. LISINOPRIL [Concomitant]
  3. VITAMINS NOS (VITAMINS NOS) [Concomitant]
  4. NORVASC [Concomitant]
  5. LIPITOR [Concomitant]

REACTIONS (1)
  - DIVERTICULITIS [None]
